FAERS Safety Report 9437576 (Version 1)
Quarter: 2013Q3

REPORT INFORMATION
  Report Type: Spontaneous
  Country: IT (occurrence: IT)
  Receive Date: 20130802
  Receipt Date: 20130802
  Transmission Date: 20140515
  Serious: Yes (Hospitalization)
  Sender: FDA-Public Use
  Company Number: IT-TEVA-412401ISR

PATIENT
  Age: 78 Year
  Sex: Male
  Weight: 45 kg

DRUGS (3)
  1. DICLOFENAC [Suspect]
     Indication: NECK PAIN
     Route: 048
     Dates: start: 20120925, end: 20121001
  2. GIASION [Suspect]
     Indication: OROPHARYNGEAL PAIN
     Route: 048
     Dates: start: 20121001, end: 20121001
  3. TAMSULOSINA CLORIDRATO [Concomitant]
     Indication: BENIGN PROSTATIC HYPERPLASIA

REACTIONS (5)
  - Abdominal pain [Unknown]
  - Nausea [Unknown]
  - Hyperhidrosis [Unknown]
  - Presyncope [Unknown]
  - Cardiac murmur [Unknown]
